FAERS Safety Report 9279163 (Version 1)
Quarter: 2013Q2

REPORT INFORMATION
  Report Type: Spontaneous
  Country: US (occurrence: US)
  Receive Date: 20130508
  Receipt Date: 20130508
  Transmission Date: 20140414
  Serious: No
  Sender: FDA-Public Use
  Company Number: US-ASTRAZENECA-2013SE25687

PATIENT
  Age: 84 Year
  Sex: Female
  Weight: 72.6 kg

DRUGS (9)
  1. CRESTOR [Suspect]
     Indication: BLOOD CHOLESTEROL ABNORMAL
     Route: 048
     Dates: end: 201204
  2. NEXIUM [Suspect]
     Indication: GASTROOESOPHAGEAL REFLUX DISEASE
     Route: 048
     Dates: start: 1998
  3. NEXIUM [Suspect]
     Indication: HIATUS HERNIA
     Route: 048
     Dates: start: 1998
  4. VYTORIN [Concomitant]
     Indication: BLOOD CHOLESTEROL ABNORMAL
  5. FUROSEMIDE [Concomitant]
     Indication: FLUID RETENTION
  6. CAPOTEN [Concomitant]
  7. ZETIA [Concomitant]
  8. POTASSIUM CHLORIDE [Concomitant]
  9. XANAX [Concomitant]

REACTIONS (10)
  - Hepatic enzyme increased [Recovered/Resolved]
  - Hypertension [Not Recovered/Not Resolved]
  - Cartilage injury [Not Recovered/Not Resolved]
  - Overweight [Not Recovered/Not Resolved]
  - Gait disturbance [Not Recovered/Not Resolved]
  - Glucose tolerance impaired [Not Recovered/Not Resolved]
  - Mental disorder [Recovering/Resolving]
  - Adverse event [Not Recovered/Not Resolved]
  - Anxiety [Not Recovered/Not Resolved]
  - Blood cholesterol increased [Not Recovered/Not Resolved]
